FAERS Safety Report 4973891-3 (Version None)
Quarter: 2006Q2

REPORT INFORMATION
  Report Type: 
  Country: None (occurrence: None)
  Receive Date: 20060410
  Receipt Date: 20060328
  Transmission Date: 20061013
  Serious: Yes (Hospitalization, Other)
  Sender: FDA-Public Use
  Company Number: HQWYE085013AUG03

PATIENT
  Age: 52 Year
  Sex: Female
  Weight: 59.47 kg

DRUGS (4)
  1. PREMPRO [Suspect]
     Indication: HORMONE REPLACEMENT THERAPY
     Dosage: ORAL
     Route: 048
     Dates: start: 19980701, end: 20001001
  2. CYCRIN [Suspect]
  3. MEDROXYPROGESTERONE [Suspect]
  4. CATAFLAM [Concomitant]

REACTIONS (33)
  - ACTIVATED PARTIAL THROMBOPLASTIN TIME PROLONGED [None]
  - ACTIVATED PARTIAL THROMBOPLASTIN TIME SHORTENED [None]
  - ADNEXA UTERI MASS [None]
  - ANTITHROMBIN III DEFICIENCY [None]
  - ATELECTASIS [None]
  - CARDIOLIPIN ANTIBODY POSITIVE [None]
  - CLEAR CELL ENDOMETRIAL CARCINOMA [None]
  - COAGULOPATHY [None]
  - DEEP VEIN THROMBOSIS [None]
  - DILATATION ATRIAL [None]
  - DILATATION VENTRICULAR [None]
  - DRUG INEFFECTIVE [None]
  - GANGRENE [None]
  - GENERAL PHYSICAL HEALTH DETERIORATION [None]
  - HYPOCOAGULABLE STATE [None]
  - LUNG DISORDER [None]
  - LUNG INFILTRATION [None]
  - MITRAL VALVE INCOMPETENCE [None]
  - MYOCARDIAL INFARCTION [None]
  - OVARIAN CANCER [None]
  - OVARIAN DISORDER [None]
  - PAPILLARY SEROUS ENDOMETRIAL CARCINOMA [None]
  - PELVIC MASS [None]
  - PLEURAL EFFUSION [None]
  - PROTEIN C DECREASED [None]
  - PROTEIN S DECREASED [None]
  - PULMONARY THROMBOSIS [None]
  - PULMONARY VASCULAR DISORDER [None]
  - RENAL VEIN THROMBOSIS [None]
  - SCAR [None]
  - THROMBOSIS [None]
  - VASODILATATION [None]
  - VENA CAVA THROMBOSIS [None]
